FAERS Safety Report 9433030 (Version 1)
Quarter: 2013Q3

REPORT INFORMATION
  Report Type: Spontaneous
  Country: US (occurrence: US)
  Receive Date: 20130731
  Receipt Date: 20130731
  Transmission Date: 20140515
  Serious: Yes (Other)
  Sender: FDA-Public Use
  Company Number: US-ROCHE-1247881

PATIENT
  Age: 27 Year
  Sex: Female
  Weight: 97.16 kg

DRUGS (4)
  1. PEGASYS [Suspect]
     Indication: HEPATITIS C
     Route: 058
     Dates: start: 20130531, end: 20130626
  2. RIBAVIRIN [Suspect]
     Indication: HEPATITIS C
     Dosage: 600 MG TWICE DAILY
     Route: 048
     Dates: start: 20130531, end: 20130626
  3. CELEBREX [Concomitant]
     Dosage: 200 MG DAILY
     Route: 048
  4. LEXAPRO [Concomitant]
     Indication: DEPRESSION
     Dosage: 10 MG DAILY
     Route: 048

REACTIONS (2)
  - Myocarditis [Recovered/Resolved]
  - Endocarditis [Unknown]
